FAERS Safety Report 4600117-2 (Version None)
Quarter: 2005Q1

REPORT INFORMATION
  Report Type: 
  Country: None (occurrence: None)
  Receive Date: 20050303
  Receipt Date: 20050217
  Transmission Date: 20050727
  Serious: No
  Sender: FDA-Public Use
  Company Number: 2005UW02753

PATIENT
  Age: 57 Year
  Sex: Female

DRUGS (4)
  1. CRESTOR [Suspect]
     Dosage: 10 MG DAILY PO
     Route: 048
  2. METFORMIN HCL [Concomitant]
  3. PERCOCET [Concomitant]
  4. SYNTHROID [Concomitant]

REACTIONS (3)
  - ARTHRALGIA [None]
  - HYPOKINESIA [None]
  - NECK PAIN [None]
